FAERS Safety Report 25305789 (Version 1)
Quarter: 2025Q2

REPORT INFORMATION
  Report Type: Spontaneous
  Country: QA (occurrence: QA)
  Receive Date: 20250513
  Receipt Date: 20250513
  Transmission Date: 20250717
  Serious: Yes (Other)
  Sender: EXELA PHARMA SCIENCES
  Company Number: QA-EXELAPHARMA-2025EXLA00074

PATIENT
  Age: 31 Year
  Sex: Male

DRUGS (5)
  1. FENTANYL CITRATE [Suspect]
     Active Substance: FENTANYL CITRATE
     Indication: Abdominal pain
     Route: 042
  2. FENTANYL CITRATE [Suspect]
     Active Substance: FENTANYL CITRATE
     Route: 042
  3. FENTANYL CITRATE [Suspect]
     Active Substance: FENTANYL CITRATE
     Route: 042
  4. FENTANYL CITRATE [Suspect]
     Active Substance: FENTANYL CITRATE
     Route: 042
  5. ACETAMINOPHEN [Concomitant]
     Active Substance: ACETAMINOPHEN
     Indication: Abdominal pain
     Route: 042

REACTIONS (1)
  - Drug ineffective for unapproved indication [Unknown]
